FAERS Safety Report 5833281-8 (Version None)
Quarter: 2008Q3

REPORT INFORMATION
  Report Type: 
  Country: None (occurrence: None)
  Receive Date: 20080805
  Receipt Date: 20080726
  Transmission Date: 20090109
  Serious: Yes (Death)
  Sender: FDA-Public Use
  Company Number: CA-BAYER-200823352GPV

PATIENT

DRUGS (2)
  1. SORAFENIB [Suspect]
     Indication: PROSTATE CANCER
     Dosage: TOTAL DAILY DOSE: 800 MG
     Route: 048
  2. BICALUTAMIDE [Concomitant]
     Indication: PROSTATE CANCER
     Dosage: TOTAL DAILY DOSE: 100 MG
     Route: 048

REACTIONS (1)
  - PANCREATITIS ACUTE [None]
